FAERS Safety Report 5633854-1 (Version None)
Quarter: 2008Q1

REPORT INFORMATION
  Report Type: 
  Country: None (occurrence: None)
  Receive Date: 20080219
  Receipt Date: 20080204
  Transmission Date: 20080703
  Serious: Yes (Hospitalization)
  Sender: FDA-Public Use
  Company Number: ADE2008-0120

PATIENT
  Age: 36 Year
  Sex: Male

DRUGS (10)
  1. CITALOPRAM HYDROBROMIDE [Suspect]
     Indication: DEPRESSION
  2. ATRACURIUM BESYLATE [Suspect]
     Indication: ENDOTRACHEAL INTUBATION
     Dosage: 40MG - AS NEEDED
  3. FENTANYL CITRATE [Suspect]
     Indication: GENERAL ANAESTHESIA
     Dosage: 100MCG - AS NEEDED
  4. FENTANYL CITRATE [Suspect]
     Indication: GENERAL ANAESTHESIA
     Dosage: 50MCG AS NEEDED
  5. GLYCOPYRRONIUM [Suspect]
     Indication: NEUROMUSCULAR BLOCKADE
     Dosage: 0.5MG AS NEEDED
  6. ISOFLURANE [Suspect]
     Indication: ANAESTHESIA
     Dosage: 1.3%
  7. KETOROLAC TROMETHAMINE [Suspect]
     Dosage: 30MG - AS NEEDED
  8. NEOSTIGMINE [Suspect]
     Indication: NEUROMUSCULAR BLOCKADE
     Dosage: 2.5MG AS NEEDED
  9. NITROUS OXIDE [Suspect]
     Indication: ANAESTHESIA
  10. THIOPENTONE [Suspect]
     Indication: ANAESTHESIA
     Dosage: 450MG AS NEEDED

REACTIONS (3)
  - COMA [None]
  - CONVERSION DISORDER [None]
  - POST PROCEDURAL COMPLICATION [None]
